FAERS Safety Report 24690693 (Version 1)
Quarter: 2024Q4

REPORT INFORMATION
  Report Type: Spontaneous
  Country: US (occurrence: None)
  Receive Date: 20241202
  Receipt Date: 20241202
  Transmission Date: 20250115
  Serious: Yes (unspecified)
  Sender: Public
  Company Number: None

PATIENT
  Age: 38 Year
  Sex: Female
  Weight: 112.5 kg

DRUGS (13)
  1. BUPRENORPHINE\NALOXONE [Suspect]
     Active Substance: BUPRENORPHINE\NALOXONE
     Indication: Dependence
     Dosage: 84 TABLETS 3 TIMES  DAY SUBLINGUAL
     Route: 060
     Dates: start: 20200103
  2. PREDNISONE [Concomitant]
     Active Substance: PREDNISONE
  3. plaquinil, [Concomitant]
  4. hydroxizine, [Concomitant]
  5. enbrel, [Concomitant]
  6. trazadone, [Concomitant]
  7. suboxone, [Concomitant]
  8. iron, [Concomitant]
  9. pantaprazole, [Concomitant]
  10. lasix, [Concomitant]
  11. potassium, [Concomitant]
  12. ZOFRAN [Concomitant]
     Active Substance: ONDANSETRON HYDROCHLORIDE
  13. TYLENOL [Concomitant]
     Active Substance: ACETAMINOPHEN

REACTIONS (2)
  - Tooth extraction [None]
  - Dental caries [None]

NARRATIVE: CASE EVENT DATE: 20200103
